FAERS Safety Report 5186502-1 (Version None)
Quarter: 2006Q4

REPORT INFORMATION
  Report Type: 
  Country: None (occurrence: None)
  Receive Date: 20061213
  Receipt Date: 20061207
  Transmission Date: 20070319
  Serious: Yes (Other)
  Sender: FDA-Public Use
  Company Number: 2006SP005230

PATIENT

DRUGS (7)
  1. INTEGRILIN [Suspect]
     Indication: ACUTE MYOCARDIAL INFARCTION
  2. INTEGRILIN [Suspect]
     Indication: ANGINA UNSTABLE
  3. INTEGRILIN [Suspect]
     Indication: STENT PLACEMENT
  4. REOPRO [Suspect]
  5. AAS [Concomitant]
  6. HEPARIN [Concomitant]
  7. PLAVIX [Concomitant]

REACTIONS (6)
  - CARDIAC TAMPONADE [None]
  - EPISTAXIS [None]
  - GINGIVAL BLEEDING [None]
  - HAEMATURIA [None]
  - HAEMOTHORAX [None]
  - RECTAL HAEMORRHAGE [None]
